FAERS Safety Report 11163490 (Version 1)
Quarter: 2015Q2

REPORT INFORMATION
  Report Type: Spontaneous
  Country: US (occurrence: US)
  Receive Date: 20150604
  Receipt Date: 20150604
  Transmission Date: 20150821
  Serious: Yes (Hospitalization)
  Sender: FDA-Public Use
  Company Number: US-SA-2014SA156064

PATIENT
  Sex: Male

DRUGS (10)
  1. LANTUS SOLOSTAR [Suspect]
     Active Substance: INSULIN GLARGINE
     Indication: DIABETES MELLITUS
     Dosage: DOSE:55 UNIT(S)
     Route: 065
     Dates: start: 20141107
  2. NOVOLOG [Concomitant]
     Active Substance: INSULIN ASPART
     Route: 065
     Dates: start: 2004
  3. LOSARTAN [Concomitant]
     Active Substance: LOSARTAN
     Dosage: DOSE: 125 (UNIT NOT CONFIRMED)
     Route: 065
     Dates: start: 2011
  4. METOPROLOL [Concomitant]
     Active Substance: METOPROLOL
     Dosage: DOSE: 50 (UNIT NOT CONFIRMED)
     Route: 065
  5. JANUMET [Concomitant]
     Active Substance: METFORMIN HYDROCHLORIDE\SITAGLIPTIN PHOSPHATE
     Dosage: DAILY DOSE: 50
     Route: 065
     Dates: start: 2012
  6. SOLOSTAR [Concomitant]
     Active Substance: DEVICE
     Indication: DEVICE THERAPY
     Dates: start: 20141107
  7. LANTUS SOLOSTAR [Suspect]
     Active Substance: INSULIN GLARGINE
     Indication: DIABETES MELLITUS
     Dosage: FORM: VIAL DOSE:60 UNIT(S)
     Route: 065
     Dates: start: 2004
  8. LANTUS SOLOSTAR [Suspect]
     Active Substance: INSULIN GLARGINE
     Indication: DIABETES MELLITUS
     Dosage: DOSE:50 UNIT(S)
     Route: 065
     Dates: start: 201411
  9. SOLOSTAR [Concomitant]
     Active Substance: DEVICE
     Indication: DEVICE THERAPY
     Dates: start: 201411
  10. LOVASTATIN. [Concomitant]
     Active Substance: LOVASTATIN
     Route: 065
     Dates: start: 2011

REACTIONS (4)
  - Blood glucose decreased [Recovering/Resolving]
  - Speech disorder [Recovering/Resolving]
  - Body temperature decreased [Recovering/Resolving]
  - Incoherent [Recovering/Resolving]

NARRATIVE: CASE EVENT DATE: 201411
